FAERS Safety Report 13181942 (Version 1)
Quarter: 2017Q1

REPORT INFORMATION
  Report Type: Spontaneous
  Country: US (occurrence: US)
  Receive Date: 20170202
  Receipt Date: 20170202
  Transmission Date: 20170428
  Serious: No
  Sender: FDA-Public Use
  Company Number: US-IMPAX LABORATORIES, INC-2016-IPXL-02416

PATIENT
  Age: 85 Year
  Sex: Female

DRUGS (1)
  1. RYTARY [Suspect]
     Active Substance: CARBIDOPA\LEVODOPA
     Indication: PRODUCT USED FOR UNKNOWN INDICATION
     Dosage: 36.25MG/145 MG (THREE CAPSULES AT 8 AM, 1PM, 6 PM AND ONE CAPSULE AT BEDTIME)
     Route: 048

REACTIONS (1)
  - Drug ineffective [Unknown]
